FAERS Safety Report 7827518-3 (Version None)
Quarter: 2011Q4

REPORT INFORMATION
  Report Type: 
  Country: None (occurrence: None)
  Receive Date: 20111020
  Receipt Date: 20111010
  Transmission Date: 20120403
  Serious: Yes (Hospitalization, Other)
  Sender: FDA-Public Use
  Company Number: PHHY2011DE77654

PATIENT
  Age: 55 Year
  Sex: Female
  Weight: 100 kg

DRUGS (6)
  1. BISOPROLOL [Concomitant]
     Dosage: 15 MG, DAY
     Route: 048
     Dates: start: 20101001
  2. ONBREZ [Suspect]
     Indication: CHRONIC OBSTRUCTIVE PULMONARY DISEASE
     Dosage: 1 DF, QD
  3. SPIRIVA [Concomitant]
     Route: 048
  4. RAMIPRIL [Concomitant]
     Dosage: UNK
     Route: 048
     Dates: start: 20101001
  5. ESIDRIX [Concomitant]
     Indication: HYPERTENSION
     Dosage: 5 MG, DAY
     Route: 048
     Dates: start: 20000101
  6. VIANI [Concomitant]
     Route: 048

REACTIONS (3)
  - INFECTION [None]
  - ATRIAL FIBRILLATION [None]
  - COUGH [None]
